FAERS Safety Report 6384350-8 (Version None)
Quarter: 2009Q3

REPORT INFORMATION
  Report Type: 
  Country: None (occurrence: None)
  Receive Date: 20090929
  Receipt Date: 20090928
  Transmission Date: 20100115
  Serious: Yes (Death)
  Sender: FDA-Public Use
  Company Number: GXKR2009DE10380

PATIENT
  Age: 23 Year
  Sex: Male

DRUGS (4)
  1. DOXEPIN HCL [Suspect]
     Dosage: ORAL
     Route: 048
  2. MORPHINE [Suspect]
  3. CODEINE SUL TAB [Suspect]
  4. DIAZEPAM [Suspect]

REACTIONS (3)
  - ASPIRATION [None]
  - DRUG TOXICITY [None]
  - NEEDLE TRACK MARKS [None]
